FAERS Safety Report 5450024-0 (Version None)
Quarter: 2007Q3

REPORT INFORMATION
  Report Type: 
  Country: None (occurrence: None)
  Receive Date: 20070912
  Receipt Date: 20070905
  Transmission Date: 20080115
  Serious: Yes (Death)
  Sender: FDA-Public Use
  Company Number: US-ASTRAZENECA-2007UW20696

PATIENT
  Age: 32 Year
  Sex: Male

DRUGS (7)
  1. SYMBICORT PMDI [Suspect]
     Indication: ASTHMA
     Dosage: 80 / 4.5 UG,1-2 INHALATIONS TWICE DAILY
     Route: 055
     Dates: start: 20070808
  2. ALBUTEROL [Concomitant]
     Indication: ASTHMA
  3. ALBUTEROL [Concomitant]
     Dosage: MORE FREQUENTLY
     Dates: start: 20070808
  4. ALLEGRA [Concomitant]
     Indication: HYPERSENSITIVITY
     Dates: start: 20070101
  5. HALOPERIDOL [Concomitant]
     Indication: SCHIZOPHRENIA
  6. BENZTROPINE [Concomitant]
     Indication: SCHIZOPHRENIA
  7. UNSPECIFIED PROTON PUMP INHIBITOR [Concomitant]
     Indication: GASTROOESOPHAGEAL REFLUX DISEASE

REACTIONS (1)
  - CARDIOMYOPATHY [None]
